FAERS Safety Report 9298320 (Version 1)
Quarter: 2013Q2

REPORT INFORMATION
  Report Type: Other
  Country: KR (occurrence: KR)
  Receive Date: 20130520
  Receipt Date: 20130520
  Transmission Date: 20140414
  Serious: Yes (Other)
  Sender: FDA-Public Use
  Company Number: KR-SHIRE-ALL1-2013-03003

PATIENT
  Age: 15 Year
  Sex: Male

DRUGS (1)
  1. ELAPRASE [Suspect]
     Indication: MUCOPOLYSACCHARIDOSIS II
     Dosage: 0.5 MG/KG, 1X/WEEK
     Route: 041

REACTIONS (2)
  - Anaphylactic reaction [Unknown]
  - Blood immunoglobulin E increased [Unknown]
